FAERS Safety Report 4300338-2 (Version None)
Quarter: 2004Q1

REPORT INFORMATION
  Report Type: 
  Country: None (occurrence: None)
  Receive Date: 20040218
  Receipt Date: 20040205
  Transmission Date: 20041129
  Serious: Yes (Other)
  Sender: FDA-Public Use
  Company Number: 2003126147

PATIENT
  Sex: Male
  Weight: 83.9154 kg

DRUGS (3)
  1. NEURONTIN [Suspect]
     Indication: ANGER
     Dosage: 900 MG (TID), ORAL
     Route: 048
     Dates: start: 20030317, end: 20030720
  2. NEURONTIN [Suspect]
     Indication: MOOD SWINGS
     Dosage: 900 MG (TID), ORAL
     Route: 048
     Dates: start: 20030317, end: 20030720
  3. DIAZEPAM [Concomitant]

REACTIONS (21)
  - AGGRESSION [None]
  - ANGER [None]
  - ANXIETY [None]
  - CONDITION AGGRAVATED [None]
  - DIARRHOEA [None]
  - DRUG DEPENDENCE [None]
  - DRUG WITHDRAWAL SYNDROME [None]
  - FAECES DISCOLOURED [None]
  - HEART RATE ABNORMAL [None]
  - HOMICIDAL IDEATION [None]
  - HYPERHIDROSIS [None]
  - LIMB INJURY [None]
  - MUSCLE SPASMS [None]
  - NAUSEA [None]
  - OESOPHAGEAL DISORDER [None]
  - PAIN [None]
  - PARAESTHESIA [None]
  - RESPIRATORY TRACT INFECTION [None]
  - SENSORY DISTURBANCE [None]
  - SUICIDAL IDEATION [None]
  - VOMITING [None]
